FAERS Safety Report 7128383-2 (Version None)
Quarter: 2010Q4

REPORT INFORMATION
  Report Type: 
  Country: None (occurrence: None)
  Receive Date: 20101130
  Receipt Date: 20101122
  Transmission Date: 20110411
  Serious: Yes (Death, Hospitalization)
  Sender: FDA-Public Use
  Company Number: DE-SANOFI-AVENTIS-2010SA064866

PATIENT
  Age: 77 Year
  Sex: Male

DRUGS (3)
  1. TAXOTERE [Suspect]
     Route: 041
     Dates: start: 20100401, end: 20100401
  2. TAXOTERE [Suspect]
     Route: 041
     Dates: start: 20101001, end: 20101001
  3. ZOMETA [Concomitant]
     Route: 042
     Dates: start: 20091001, end: 20100901

REACTIONS (3)
  - ASTHENIA [None]
  - CEREBRAL HAEMORRHAGE [None]
  - PAIN [None]
